FAERS Safety Report 8405683-7 (Version None)
Quarter: 2012Q2

REPORT INFORMATION
  Report Type: 
  Country: None (occurrence: None)
  Receive Date: 20120604
  Receipt Date: 20120529
  Transmission Date: 20120825
  Serious: Yes (Hospitalization)
  Sender: FDA-Public Use
  Company Number: US-AMGEN-USASP2012027376

PATIENT
  Age: 39 Year
  Sex: Female
  Weight: 95.238 kg

DRUGS (7)
  1. METHOTREXATE [Concomitant]
     Indication: PSORIATIC ARTHROPATHY
     Dosage: 25 MG, QWK 6 TABS
     Route: 048
     Dates: start: 20111011
  2. ENBREL [Suspect]
     Indication: PSORIASIS
     Dosage: 50 MG, QWK
     Route: 058
     Dates: start: 20120106, end: 20120401
  3. CYMBALTA [Concomitant]
     Indication: MUSCULAR WEAKNESS
     Dosage: 40 MG, QHS
     Dates: start: 20120501
  4. CELEBREX [Concomitant]
     Indication: PSORIATIC ARTHROPATHY
     Dosage: 200 MG, QD
     Route: 048
     Dates: start: 20120103
  5. ENBREL [Suspect]
     Indication: PSORIATIC ARTHROPATHY
  6. SAVELLA [Concomitant]
     Indication: ARTHRALGIA
     Dosage: 50 MG, BID
     Route: 048
     Dates: start: 20120410
  7. FOLIC ACID [Concomitant]
     Indication: PSORIATIC ARTHROPATHY
     Dosage: 1 MG, QD
     Route: 048
     Dates: start: 20111011

REACTIONS (6)
  - FALL [None]
  - SPINAL DISORDER [None]
  - MUSCULAR WEAKNESS [None]
  - MUSCLE SPASMS [None]
  - HYPOAESTHESIA [None]
  - PAIN IN EXTREMITY [None]
